FAERS Safety Report 5257919-1 (Version None)
Quarter: 2007Q1

REPORT INFORMATION
  Report Type: 
  Country: None (occurrence: None)
  Receive Date: 20070307
  Receipt Date: 20061127
  Transmission Date: 20070707
  Serious: No
  Sender: FDA-Public Use
  Company Number: US-GLAXOSMITHKLINE-A0624413A

PATIENT
  Age: 49 Year
  Sex: Male
  Weight: 132.7 kg

DRUGS (12)
  1. REQUIP [Suspect]
     Indication: RESTLESS LEGS SYNDROME
     Dates: start: 20060701, end: 20060901
  2. PLAVIX [Concomitant]
  3. ASPIRIN [Concomitant]
  4. MULTI-VITAMIN [Concomitant]
  5. LIPITOR [Concomitant]
  6. EFFEXOR [Concomitant]
  7. NEXIUM [Concomitant]
  8. LEVOTHYROXINE SODIUM [Concomitant]
  9. ZETIA [Concomitant]
  10. ALTACE [Concomitant]
  11. TRAZODONE HCL [Concomitant]
  12. ZANAFLEX [Concomitant]

REACTIONS (6)
  - FALL [None]
  - INSOMNIA [None]
  - MUSCLE SPASMS [None]
  - OEDEMA PERIPHERAL [None]
  - PAIN IN EXTREMITY [None]
  - RESTLESS LEGS SYNDROME [None]
